FAERS Safety Report 7096514-9 (Version None)
Quarter: 2010Q4

REPORT INFORMATION
  Report Type: 
  Country: None (occurrence: None)
  Receive Date: 20101111
  Receipt Date: 20101110
  Transmission Date: 20110411
  Serious: Yes (Hospitalization)
  Sender: FDA-Public Use
  Company Number: A0874421A

PATIENT
  Age: 75 Year
  Sex: Female

DRUGS (11)
  1. FLONASE [Suspect]
     Indication: RHINITIS
     Dosage: 1SPR TWICE PER DAY
     Route: 045
     Dates: start: 20100501
  2. GLUCOTROL [Concomitant]
  3. NEPHRO-VITE [Concomitant]
  4. ALLOPURINOL [Concomitant]
  5. VYTORIN [Concomitant]
  6. NORVASC [Concomitant]
  7. FUROSEMIDE [Concomitant]
  8. DIOVAN [Concomitant]
  9. ACIPHEX [Concomitant]
  10. SYSTANE [Concomitant]
  11. LABETALOL HCL [Concomitant]

REACTIONS (4)
  - ARTERIOVENOUS FISTULA OPERATION [None]
  - LIMB OPERATION [None]
  - OTORRHOEA [None]
  - THERAPEUTIC RESPONSE UNEXPECTED [None]
